FAERS Safety Report 4895470-9 (Version None)
Quarter: 2006Q1

REPORT INFORMATION
  Report Type: 
  Country: None (occurrence: None)
  Receive Date: 20060130
  Receipt Date: 20060105
  Transmission Date: 20060701
  Serious: Yes (Hospitalization)
  Sender: FDA-Public Use
  Company Number: US-BOEHRINGER INGELHEIM PHARMACEUTICALS, INC.-2006-BP-00134BP

PATIENT
  Sex: Female
  Weight: 62.6 kg

DRUGS (7)
  1. PRAMIPEXOLE TABLETS [Suspect]
     Indication: PARKINSON'S DISEASE
     Route: 048
     Dates: start: 20051020, end: 20060119
  2. AMIODARONE HCL [Suspect]
     Indication: ATRIAL FIBRILLATION
     Route: 048
     Dates: start: 20060102
  3. LASIX [Suspect]
     Indication: CARDIAC FAILURE CONGESTIVE
     Route: 048
     Dates: start: 20060102
  4. UNITHROID [Suspect]
     Indication: HYPOTHYROIDISM
     Route: 048
     Dates: start: 20051014
  5. COREG [Suspect]
     Indication: ATRIAL FIBRILLATION
     Route: 048
     Dates: start: 20060102
  6. COUMADIN [Concomitant]
     Indication: ATRIAL FIBRILLATION
  7. ZETIA [Concomitant]

REACTIONS (3)
  - ATRIAL FIBRILLATION [None]
  - CARDIAC FAILURE CONGESTIVE [None]
  - HEPATIC ENZYME INCREASED [None]
